FAERS Safety Report 21743501 (Version 1)
Quarter: 2022Q4

REPORT INFORMATION
  Report Type: Spontaneous
  Country: FR (occurrence: FR)
  Receive Date: 20221217
  Receipt Date: 20221217
  Transmission Date: 20230113
  Serious: Yes (Other)
  Sender: FDA-Public Use
  Company Number: FR-BAXTER-26298

PATIENT
  Age: 69 Year
  Sex: Female

DRUGS (3)
  1. CYCLOPHOSPHAMIDE [Suspect]
     Active Substance: CYCLOPHOSPHAMIDE
     Indication: Product used for unknown indication
     Dosage: 300 MG/DOSE 1 DOSE(S)/WEEK 3 WEEKS(S)/CYCLE, (TREATMENT LINE NUMBER 1, DURATION: 2.7 MONTHS)
     Route: 065
     Dates: end: 20191231
  2. DEXAMETHASONE [Suspect]
     Active Substance: DEXAMETHASONE
     Indication: Product used for unknown indication
     Dosage: 40 MG/DOSE 2 DOSE(S)/WEEK 2 WEEK(S)/CYCLE, (TREATMENT LINE NUMBER 1, DURATION: 2.7 MONTHS)
     Route: 065
     Dates: end: 20191231
  3. BORTEZOMIB [Suspect]
     Active Substance: BORTEZOMIB
     Indication: Product used for unknown indication
     Dosage: 1.3 MG/M2/DOSE 2 DOSE(S)/WEEK 2WEEK(S)/CYCLE, (TREATMENT LINE NUMBER 1, DURATION: 2.7 MONTHS)
     Route: 065
     Dates: end: 20191231

REACTIONS (1)
  - Neuropathy peripheral [Unknown]

NARRATIVE: CASE EVENT DATE: 20191231
